FAERS Safety Report 24616589 (Version 1)
Quarter: 2024Q4

REPORT INFORMATION
  Report Type: Spontaneous
  Country: US (occurrence: US)
  Receive Date: 20241114
  Receipt Date: 20241114
  Transmission Date: 20250114
  Serious: No
  Sender: JOHNSON AND JOHNSON
  Company Number: US-JNJFOC-20241129295

PATIENT
  Sex: Male

DRUGS (3)
  1. CARVYKTI [Suspect]
     Active Substance: CILTACABTAGENE AUTOLEUCEL
     Indication: Product used for unknown indication
     Route: 065
  2. BENADRYL [DIPHENHYDRAMINE] [Concomitant]
  3. TYLENOL [Concomitant]
     Active Substance: ACETAMINOPHEN

REACTIONS (4)
  - Flushing [Recovering/Resolving]
  - Hypotension [Recovering/Resolving]
  - Wheezing [Recovering/Resolving]
  - Stridor [Not Recovered/Not Resolved]

NARRATIVE: CASE EVENT DATE: 20241112
